FAERS Safety Report 7767133-3 (Version None)
Quarter: 2011Q3

REPORT INFORMATION
  Report Type: 
  Country: None (occurrence: None)
  Receive Date: 20110922
  Receipt Date: 20110207
  Transmission Date: 20111222
  Serious: No
  Sender: FDA-Public Use
  Company Number: US-ASTRAZENECA-2011SE07069

PATIENT
  Age: 68 Year
  Sex: Female

DRUGS (1)
  1. SEROQUEL [Suspect]
     Indication: SCHIZOPHRENIA, PARANOID TYPE
     Dosage: 12.5 MG BID AND 50MG HS
     Route: 048
     Dates: start: 20110101

REACTIONS (4)
  - ANGER [None]
  - DRUG DOSE OMISSION [None]
  - IRRITABILITY [None]
  - AGITATION [None]
